FAERS Safety Report 4742857-0 (Version None)
Quarter: 2005Q3

REPORT INFORMATION
  Report Type: 
  Country: None (occurrence: None)
  Receive Date: 20050811
  Receipt Date: 20050622
  Transmission Date: 20060218
  Serious: Yes (Hospitalization, Disabling)
  Sender: FDA-Public Use
  Company Number: US-MERCK-0506USA03317

PATIENT
  Age: 50 Year
  Sex: Male
  Weight: 82 kg

DRUGS (11)
  1. VIOXX [Suspect]
     Indication: BACK INJURY
     Route: 048
     Dates: start: 20010327, end: 20040901
  2. ENDOCET [Concomitant]
     Route: 065
  3. CARISOPRODOL [Concomitant]
     Route: 065
  4. ZANAFLEX [Concomitant]
     Route: 065
  5. FLOMAX [Concomitant]
     Route: 065
  6. PREDNISONE [Concomitant]
     Route: 065
  7. ACETAMINOPHEN AND HYDROCODONE BITARTRATE [Concomitant]
     Route: 065
  8. ACETAMINOPHEN AND OXYCODONE HYDROCHLORIDE [Concomitant]
     Route: 065
  9. ACETAMINOPHEN AND PROPOXYPHENE NAPSYLATE [Concomitant]
     Route: 065
  10. ULTRAM [Concomitant]
     Route: 065
  11. OXYCONTIN [Concomitant]
     Route: 065

REACTIONS (3)
  - ACUTE MYOCARDIAL INFARCTION [None]
  - BACK DISORDER [None]
  - PROSTATISM [None]
